FAERS Safety Report 7664779-8 (Version None)
Quarter: 2011Q3

REPORT INFORMATION
  Report Type: 
  Country: None (occurrence: None)
  Receive Date: 20110806
  Receipt Date: 20110131
  Transmission Date: 20111222
  Serious: No
  Sender: FDA-Public Use
  Company Number: US-ABBOTT-11P-163-0701513-00

PATIENT
  Sex: Male
  Weight: 85.352 kg

DRUGS (5)
  1. NIASPAN [Suspect]
     Indication: ARTERIOSCLEROSIS
     Dates: start: 20110120
  2. ASPIRIN [Concomitant]
     Indication: PRODUCT USED FOR UNKNOWN INDICATION
     Dosage: AT BEDTIME
  3. FISH OIL [Concomitant]
     Indication: PRODUCT USED FOR UNKNOWN INDICATION
     Dosage: DAILY
  4. UNKNOWN MEDICATION [Concomitant]
     Indication: GASTROOESOPHAGEAL REFLUX DISEASE
  5. NASACORT [Concomitant]
     Indication: ALLERGIC SINUSITIS

REACTIONS (5)
  - INSOMNIA [None]
  - PARAESTHESIA [None]
  - FLUSHING [None]
  - FEELING HOT [None]
  - GENERALISED ERYTHEMA [None]
